FAERS Safety Report 5553963-5 (Version None)
Quarter: 2007Q4

REPORT INFORMATION
  Report Type: 
  Country: None (occurrence: None)
  Receive Date: 20071213
  Receipt Date: 20071130
  Transmission Date: 20080405
  Serious: Yes (Other)
  Sender: FDA-Public Use
  Company Number: ES-ELI_LILLY_AND_COMPANY-ES200712000030

PATIENT
  Age: 76 Year
  Sex: Female

DRUGS (4)
  1. FORTEO [Suspect]
     Indication: OSTEOARTHRITIS
     Dosage: 20 UG, UNKNOWN
     Route: 058
     Dates: start: 20060201, end: 20070216
  2. REXER [Concomitant]
     Indication: DEPRESSION
     Dosage: 15 MG, DAILY (1/D)
     Route: 048
  3. VENLAFAXINE HCL [Concomitant]
     Indication: DEPRESSION
     Dosage: 75 MG, DAILY (1/D)
     Route: 048
     Dates: start: 20041201
  4. HIDROFEROL [Concomitant]
     Indication: OSTEOARTHRITIS
     Dosage: 3 ML, DAILY (1/D)
     Route: 048
     Dates: start: 20060201

REACTIONS (4)
  - DEPRESSION [None]
  - ERYTHEMA [None]
  - HEADACHE [None]
  - INSOMNIA [None]
